FAERS Safety Report 8021717-6 (Version None)
Quarter: 2012Q1

REPORT INFORMATION
  Report Type: 
  Country: None (occurrence: None)
  Receive Date: 20120104
  Receipt Date: 20111230
  Transmission Date: 20120608
  Serious: Yes (Other)
  Sender: FDA-Public Use
  Company Number: PHHY2011BR113725

PATIENT
  Sex: Female

DRUGS (1)
  1. EXFORGE [Suspect]
     Dosage: 1 DF, UNK

REACTIONS (4)
  - BLOOD PRESSURE INCREASED [None]
  - BLOOD CHOLESTEROL [None]
  - MALAISE [None]
  - DIABETES MELLITUS [None]
